FAERS Safety Report 5666901-1 (Version None)
Quarter: 2008Q1

REPORT INFORMATION
  Report Type: 
  Country: None (occurrence: None)
  Receive Date: 20080315
  Receipt Date: 20080111
  Transmission Date: 20080703
  Serious: No
  Sender: FDA-Public Use
  Company Number: US-ABBOTT-08P-163-0432511-00

PATIENT
  Sex: Male
  Weight: 83.536 kg

DRUGS (5)
  1. HUMIRA [Suspect]
     Indication: CROHN'S DISEASE
     Route: 058
     Dates: start: 20071130, end: 20071130
  2. HUMIRA [Suspect]
     Route: 058
     Dates: start: 20071213, end: 20071213
  3. HUMIRA [Suspect]
     Route: 058
     Dates: start: 20071227
  4. ESCITALOPRAM OXALATE [Concomitant]
     Indication: DRUG USE FOR UNKNOWN INDICATION
     Dates: end: 20080107
  5. PENTAZA [Concomitant]
     Indication: DRUG USE FOR UNKNOWN INDICATION

REACTIONS (6)
  - BURNING SENSATION [None]
  - COLD SWEAT [None]
  - DYSPNOEA [None]
  - FEELING HOT [None]
  - HOT FLUSH [None]
  - PALPITATIONS [None]
